FAERS Safety Report 17360227 (Version 1)
Quarter: 2020Q1

REPORT INFORMATION
  Report Type: Report from Study
  Country: US (occurrence: US)
  Receive Date: 20200203
  Receipt Date: 20200203
  Transmission Date: 20200409
  Serious: Yes (Other)
  Sender: FDA-Public Use
  Company Number: US-EMD SERONO-9143271

PATIENT
  Age: 60 Year
  Sex: Female

DRUGS (3)
  1. REBIF [Suspect]
     Active Substance: INTERFERON BETA-1A
     Indication: PRODUCT USED FOR UNKNOWN INDICATION
     Route: 058
     Dates: start: 20110323, end: 20110325
  2. REBIF [Suspect]
     Active Substance: INTERFERON BETA-1A
     Route: 058
     Dates: start: 20190515
  3. REBIF [Suspect]
     Active Substance: INTERFERON BETA-1A
     Route: 058
     Dates: start: 20140305, end: 20190125

REACTIONS (4)
  - Knee arthroplasty [Unknown]
  - Balance disorder [Unknown]
  - Yellow skin [Unknown]
  - Product dose omission [Unknown]

NARRATIVE: CASE EVENT DATE: 201710
